FAERS Safety Report 5587641-3 (Version None)
Quarter: 2008Q1

REPORT INFORMATION
  Report Type: 
  Country: None (occurrence: None)
  Receive Date: 20080108
  Receipt Date: 20071226
  Transmission Date: 20080703
  Serious: Yes (Hospitalization)
  Sender: FDA-Public Use
  Company Number: 230946J07USA

PATIENT
  Age: 41 Year
  Sex: Female

DRUGS (3)
  1. REBIF [Suspect]
     Indication: MULTIPLE SCLEROSIS
     Dosage: 8.8 MCG, NOT REPORTED, NOT REPORTED; 22 MCG, NOT REPORTED, NOT REPORTED; 44 MCG, 3 IN 1 WEEKS, SUBCU
     Route: 058
     Dates: start: 20070101, end: 20070101
  2. REBIF [Suspect]
     Indication: MULTIPLE SCLEROSIS
     Dosage: 8.8 MCG, NOT REPORTED, NOT REPORTED; 22 MCG, NOT REPORTED, NOT REPORTED; 44 MCG, 3 IN 1 WEEKS, SUBCU
     Route: 058
     Dates: start: 20070928, end: 20070101
  3. REBIF [Suspect]
     Indication: MULTIPLE SCLEROSIS
     Dosage: 8.8 MCG, NOT REPORTED, NOT REPORTED; 22 MCG, NOT REPORTED, NOT REPORTED; 44 MCG, 3 IN 1 WEEKS, SUBCU
     Route: 058
     Dates: start: 20070101

REACTIONS (1)
  - GASTROINTESTINAL OBSTRUCTION [None]
